FAERS Safety Report 10680063 (Version 2)
Quarter: 2015Q1

REPORT INFORMATION
  Report Type: Spontaneous
  Country: JP (occurrence: JP)
  Receive Date: 20141229
  Receipt Date: 20150120
  Transmission Date: 20150720
  Serious: Yes (Other)
  Sender: FDA-Public Use
  Company Number: JP-GLAXOSMITHKLINE-JP2014JPN042724

PATIENT
  Age: 18 Year
  Sex: Male
  Weight: 60 kg

DRUGS (5)
  1. OLOPATADINE HYDROCHLORIDE OD [Concomitant]
     Dosage: 5 MG, BID
  2. CALONAL [Concomitant]
     Active Substance: ACETAMINOPHEN
     Dosage: UNK
  3. CLARITHROMYCIN. [Concomitant]
     Active Substance: CLARITHROMYCIN
     Dosage: 200 MG, BID
  4. RELENZA [Suspect]
     Active Substance: ZANAMIVIR
     Indication: INFLUENZA
     Dosage: 10 MG, BID
     Route: 055
     Dates: start: 20141224, end: 20141224
  5. COUGHCODE [Concomitant]
     Dosage: 2 DF, TID

REACTIONS (3)
  - Fall [Unknown]
  - Loss of consciousness [Recovered/Resolved]
  - Nausea [Unknown]

NARRATIVE: CASE EVENT DATE: 20141224
